FAERS Safety Report 8935564 (Version 1)
Quarter: 2012Q4

REPORT INFORMATION
  Report Type: 
  Country: EC (occurrence: EC)
  Receive Date: 20121130
  Receipt Date: 20121130
  Transmission Date: 20130627
  Serious: Yes (Death, Other)
  Sender: FDA-Public Use
  Company Number: PHHY2012EC109375

PATIENT
  Age: 87 Year
  Sex: Female

DRUGS (1)
  1. DIOVAN HCT [Suspect]
     Dosage: 1 DF, QD(vals 160 mg, hydr 10 mg)
     Route: 048
     Dates: end: 20121109

REACTIONS (7)
  - Concomitant disease progression [Fatal]
  - Renal failure chronic [Fatal]
  - Hepatic cirrhosis [Fatal]
  - Hepatitis [Not Recovered/Not Resolved]
  - Anaemia [Not Recovered/Not Resolved]
  - Malaise [Unknown]
  - Abdominal pain [Unknown]
